FAERS Safety Report 14473188 (Version 1)
Quarter: 2018Q1

REPORT INFORMATION
  Report Type: Report from Study
  Country: None (occurrence: US)
  Receive Date: 20180201
  Receipt Date: 20180201
  Transmission Date: 20180509
  Serious: Yes (Hospitalization, Other)
  Sender: FDA-Public Use
  Company Number: US-ABBVIE-18K-163-2231310-00

PATIENT
  Age: 54 Year
  Sex: Male

DRUGS (9)
  1. MORPHINE [Suspect]
     Active Substance: MORPHINE
     Route: 065
     Dates: start: 201712
  2. CARVEDILOL. [Concomitant]
     Active Substance: CARVEDILOL
     Indication: HYPERTENSION
  3. HUMIRA [Suspect]
     Active Substance: ADALIMUMAB
     Indication: RHEUMATOID ARTHRITIS
     Route: 058
     Dates: start: 201511
  4. OXYCODONE [Suspect]
     Active Substance: OXYCODONE
     Indication: PAIN IN EXTREMITY
     Route: 065
     Dates: start: 201712, end: 201712
  5. NARCAN [Suspect]
     Active Substance: NALOXONE HYDROCHLORIDE
     Indication: OVERDOSE
     Route: 042
     Dates: start: 20171216, end: 20171216
  6. POTASSIUM [Concomitant]
     Active Substance: POTASSIUM
     Indication: MINERAL SUPPLEMENTATION
  7. PROTONIX [Concomitant]
     Active Substance: PANTOPRAZOLE SODIUM
     Indication: DYSPEPSIA
  8. MORPHINE [Suspect]
     Active Substance: MORPHINE
     Indication: PAIN IN EXTREMITY
     Route: 065
     Dates: start: 2013, end: 201712
  9. LASIX [Concomitant]
     Active Substance: FUROSEMIDE
     Indication: CARDIAC FAILURE CONGESTIVE

REACTIONS (14)
  - Osteoarthritis [Recovered/Resolved]
  - Intervertebral disc compression [Not Recovered/Not Resolved]
  - Renal cyst [Not Recovered/Not Resolved]
  - Hypoaesthesia [Recovering/Resolving]
  - Paraesthesia [Recovering/Resolving]
  - Hypertension [Recovered/Resolved]
  - Accidental overdose [Recovered/Resolved]
  - Sneezing [Recovered/Resolved]
  - Gait disturbance [Recovered/Resolved]
  - Insomnia [Not Recovered/Not Resolved]
  - Tremor [Recovered/Resolved]
  - Pain in extremity [Recovering/Resolving]
  - Atrial fibrillation [Recovered/Resolved]
  - Drug withdrawal syndrome [Recovered/Resolved]

NARRATIVE: CASE EVENT DATE: 2016
